FAERS Safety Report 17975746 (Version 1)
Quarter: 2020Q3

REPORT INFORMATION
  Report Type: Spontaneous
  Country: US (occurrence: US)
  Receive Date: 20200702
  Receipt Date: 20200702
  Transmission Date: 20201103
  Serious: Yes (Hospitalization, Other)
  Sender: FDA-Public Use
  Company Number: US-GLAXOSMITHKLINE-US2020GSK110053

PATIENT
  Age: 37 Year
  Sex: Male

DRUGS (1)
  1. VALACICLOVIR [Suspect]
     Active Substance: VALACYCLOVIR HYDROCHLORIDE
     Indication: GENITAL HERPES
     Dosage: 1000 MG, 1D

REACTIONS (13)
  - ADAMTS13 activity decreased [Recovered/Resolved]
  - Blood bilirubin unconjugated increased [Recovered/Resolved]
  - Blood urine present [Recovered/Resolved]
  - Schistocytosis [Recovered/Resolved]
  - Dyspnoea exertional [Recovered/Resolved]
  - Thrombocytopenia [Recovered/Resolved]
  - Haemolytic anaemia [Recovered/Resolved]
  - Sinus tachycardia [Recovered/Resolved]
  - Leukocytosis [Recovered/Resolved]
  - Thrombotic thrombocytopenic purpura [Recovered/Resolved]
  - Palpitations [Recovered/Resolved]
  - Protein urine present [Recovered/Resolved]
  - Red blood cells urine positive [Recovered/Resolved]
